FAERS Safety Report 6569753-0 (Version None)
Quarter: 2010Q1

REPORT INFORMATION
  Report Type: 
  Country: None (occurrence: None)
  Receive Date: 20100202
  Receipt Date: 20100202
  Transmission Date: 20100710
  Serious: Yes (Hospitalization)
  Sender: FDA-Public Use
  Company Number: None

PATIENT
  Age: 85 Year
  Sex: Male

DRUGS (1)
  1. METHOTREXATE [Suspect]
     Indication: PSORIATIC ARTHROPATHY
     Dosage: 11 TAB QWEEK PO
     Route: 048
     Dates: start: 20050608, end: 20100109

REACTIONS (24)
  - ABDOMINAL DISTENSION [None]
  - ANAEMIA MACROCYTIC [None]
  - BONE MARROW FAILURE [None]
  - CHILLS [None]
  - CONSTIPATION [None]
  - DEHYDRATION [None]
  - DRUG TOXICITY [None]
  - DYSPHAGIA [None]
  - EPISTAXIS [None]
  - GLUCOSE-6-PHOSPHATE DEHYDROGENASE DEFICIENCY [None]
  - GRANULOMA [None]
  - LEUKOCYTOSIS [None]
  - LEUKOPENIA [None]
  - MOUTH ULCERATION [None]
  - NEUTROPENIA [None]
  - PANCREATIC DISORDER [None]
  - PERICARDIAL EFFUSION [None]
  - PLEURAL CALCIFICATION [None]
  - PLEURAL EFFUSION [None]
  - PNEUMOCYSTIS JIROVECI PNEUMONIA [None]
  - RENAL IMPAIRMENT [None]
  - THROMBOCYTOPENIA [None]
  - THROMBOCYTOSIS [None]
  - TRAUMATIC LUNG INJURY [None]
